FAERS Safety Report 9947920 (Version 1)
Quarter: 2014Q1

REPORT INFORMATION
  Report Type: Report from Study
  Country: US (occurrence: US)
  Receive Date: 20140303
  Receipt Date: 20140303
  Transmission Date: 20141002
  Serious: No
  Sender: FDA-Public Use
  Company Number: US-ABBVIE-13P-163-1058988-00

PATIENT
  Age: 69 Year
  Sex: Female

DRUGS (8)
  1. HUMIRA [Suspect]
     Indication: PSORIASIS
     Dates: start: 20130211
  2. LEVOXYL [Concomitant]
     Indication: THYROID DISORDER
  3. LISINOPRIL [Concomitant]
     Indication: BLOOD PRESSURE
  4. LIPITOR [Concomitant]
     Indication: BLOOD CHOLESTEROL
  5. AZOPT [Concomitant]
     Indication: UVEITIS
  6. NEVANAC [Concomitant]
     Indication: UVEITIS
  7. DOVONEX [Concomitant]
     Indication: PSORIASIS
  8. VITAMIN D AND ANALOGUES [Concomitant]
     Indication: PRODUCT USED FOR UNKNOWN INDICATION

REACTIONS (5)
  - Dysphonia [Not Recovered/Not Resolved]
  - Laryngitis [Not Recovered/Not Resolved]
  - Cough [Not Recovered/Not Resolved]
  - Psoriasis [Unknown]
  - Uveitis [Unknown]
